FAERS Safety Report 17239477 (Version 1)
Quarter: 2020Q1

REPORT INFORMATION
  Report Type: Spontaneous
  Country: US (occurrence: US)
  Receive Date: 20200106
  Receipt Date: 20200106
  Transmission Date: 20200409
  Serious: Yes (Other)
  Sender: FDA-Public Use
  Company Number: US-AMAG PHARMACEUTICALS, INC.-AMAG202000047

PATIENT
  Age: 0 Day
  Sex: Male
  Weight: 2.72 kg

DRUGS (2)
  1. MAKENA [Suspect]
     Active Substance: HYDROXYPROGESTERONE CAPROATE
     Indication: FOETAL EXPOSURE DURING PREGNANCY
     Route: 064
  2. MAKENA [Suspect]
     Active Substance: HYDROXYPROGESTERONE CAPROATE
     Indication: PREMATURE DELIVERY

REACTIONS (6)
  - Blood glucose decreased [Not Recovered/Not Resolved]
  - Premature baby [Unknown]
  - Blood bilirubin increased [Not Recovered/Not Resolved]
  - Underweight [Not Recovered/Not Resolved]
  - Gastrooesophageal reflux disease [Not Recovered/Not Resolved]
  - Sandifer^s syndrome [Not Recovered/Not Resolved]

NARRATIVE: CASE EVENT DATE: 20190615
